FAERS Safety Report 9612584 (Version 1)
Quarter: 2013Q4

REPORT INFORMATION
  Report Type: Spontaneous
  Country: US (occurrence: US)
  Receive Date: 20131010
  Receipt Date: 20131010
  Transmission Date: 20140711
  Serious: Yes (Other)
  Sender: FDA-Public Use
  Company Number: US-ABBVIE-13P-163-1154182-00

PATIENT
  Age: 63 Year
  Sex: Female
  Weight: 60.84 kg

DRUGS (2)
  1. SYNTHROID [Suspect]
     Indication: HYPOTHYROIDISM
     Dates: start: 201307, end: 201308
  2. CLORAZEPATE [Concomitant]
     Indication: MENINGITIS VIRAL

REACTIONS (8)
  - Migraine [Recovered/Resolved]
  - Migraine with aura [Recovered/Resolved]
  - Meningitis viral [Not Recovered/Not Resolved]
  - Nervousness [Not Recovered/Not Resolved]
  - Neck pain [Not Recovered/Not Resolved]
  - Musculoskeletal pain [Not Recovered/Not Resolved]
  - Pain in extremity [Not Recovered/Not Resolved]
  - Spondylitis [Unknown]
